FAERS Safety Report 5748758-3 (Version None)
Quarter: 2008Q2

REPORT INFORMATION
  Report Type: 
  Country: None (occurrence: None)
  Receive Date: 20080521
  Receipt Date: 20080507
  Transmission Date: 20081010
  Serious: Yes (Other)
  Sender: FDA-Public Use
  Company Number: 8032564

PATIENT
  Age: 28 Year
  Sex: Female
  Weight: 60 kg

DRUGS (2)
  1. XYZAL [Suspect]
     Indication: RHINITIS SEASONAL
     Dosage: 5 MG 1/D
     Dates: start: 20080214, end: 20080402
  2. MICROGYNON  /00022701/ [Suspect]
     Indication: ORAL CONTRACEPTION
     Dosage: 1 DF 21/28D
     Dates: start: 20071129, end: 20080402

REACTIONS (2)
  - DRUG INTERACTION [None]
  - PREGNANCY ON ORAL CONTRACEPTIVE [None]
